FAERS Safety Report 7968353-5 (Version None)
Quarter: 2011Q4

REPORT INFORMATION
  Report Type: 
  Country: None (occurrence: None)
  Receive Date: 20111209
  Receipt Date: 20111207
  Transmission Date: 20120403
  Serious: Yes (Hospitalization)
  Sender: FDA-Public Use
  Company Number: KR-BAYER-2011-112184

PATIENT
  Age: 52 Year
  Sex: Female

DRUGS (4)
  1. SORAFENIB (RAF KINASE INHIBITOR) [Suspect]
     Dosage: 400 MG, BID
     Dates: start: 20111101, end: 20111118
  2. SORAFENIB (RAF KINASE INHIBITOR) [Suspect]
     Indication: GASTRIC CANCER
     Dosage: 800MG/DAY, FREQUENCY: BID
     Dates: start: 20111012
  3. CAPECITABINE [Suspect]
     Indication: GASTRIC CANCER
     Dosage: 2300MG/DAY, FREQUENCY: BID
     Dates: start: 20111101, end: 20111115
  4. CISPLATIN [Suspect]
     Indication: GASTRIC CANCER
     Dosage: 90MG OD
     Dates: start: 20111101

REACTIONS (2)
  - CEREBRAL INFARCTION [None]
  - SOMNOLENCE [None]
